FAERS Safety Report 12797481 (Version 1)
Quarter: 2016Q3

REPORT INFORMATION
  Report Type: Spontaneous
  Country: US (occurrence: US)
  Receive Date: 20160929
  Receipt Date: 20160929
  Transmission Date: 20161109
  Serious: No
  Sender: FDA-Public Use
  Company Number: None

PATIENT
  Sex: Male

DRUGS (1)
  1. VOTRIENT [Suspect]
     Active Substance: PAZOPANIB HYDROCHLORIDE
     Indication: RENAL CANCER
     Dosage: 4 TABLETS EVERY MORNING BY MOUTH
     Route: 048

REACTIONS (4)
  - Fatigue [None]
  - Dyspnoea [None]
  - Liver function test abnormal [None]
  - Hypotrichosis [None]
